FAERS Safety Report 4877254-0 (Version None)
Quarter: 2006Q1

REPORT INFORMATION
  Report Type: 
  Country: None (occurrence: None)
  Receive Date: 20060109
  Receipt Date: 20060109
  Transmission Date: 20060701
  Serious: No
  Sender: FDA-Public Use
  Company Number: None

PATIENT
  Sex: Male
  Weight: 109 kg

DRUGS (13)
  1. IDARUBICIN HCL [Suspect]
     Indication: ACUTE MYELOID LEUKAEMIA
     Dosage: 25 MG IV X 3 DOSES
     Route: 042
     Dates: start: 20051220
  2. IDARUBICIN HCL [Suspect]
     Indication: ACUTE MYELOID LEUKAEMIA
     Dosage: 25 MG IV X 3 DOSES
     Route: 042
     Dates: start: 20051222
  3. IDARUBICIN HCL [Suspect]
     Indication: ACUTE MYELOID LEUKAEMIA
     Dosage: 25 MG IV X 3 DOSES
     Route: 042
     Dates: start: 20051223
  4. DILTIAZEM HCL [Concomitant]
  5. GLIMEPIRIDE [Concomitant]
  6. ALLOPURINOL [Concomitant]
  7. INSULIN GLARGINE [Concomitant]
  8. IMIPENEM [Concomitant]
  9. VALSARTAN [Concomitant]
  10. LORAZEPAM [Concomitant]
  11. CYTARABINE [Concomitant]
  12. DEXAMETHASONE TAB [Concomitant]
  13. ODANSETRON [Concomitant]

REACTIONS (1)
  - BRADYCARDIA [None]
